FAERS Safety Report 8229530-1 (Version None)
Quarter: 2012Q1

REPORT INFORMATION
  Report Type: 
  Country: None (occurrence: None)
  Receive Date: 20120322
  Receipt Date: 20120306
  Transmission Date: 20120608
  Serious: Yes (Hospitalization, Other)
  Sender: FDA-Public Use
  Company Number: CHPA2012US004667

PATIENT
  Age: 67 Year
  Sex: Male

DRUGS (2)
  1. 4 WAY MENTHOLATED NASAL SPRAY [Suspect]
     Indication: SEASONAL ALLERGY
     Dosage: UNK, PRN
     Route: 045
  2. LIPITOR [Concomitant]
     Dosage: UNK, UNK

REACTIONS (5)
  - DYSPNOEA EXERTIONAL [None]
  - CARDIAC FAILURE CONGESTIVE [None]
  - CHRONIC OBSTRUCTIVE PULMONARY DISEASE [None]
  - WHEELCHAIR USER [None]
  - PNEUMONIA [None]
